FAERS Safety Report 13524568 (Version 5)
Quarter: 2019Q2

REPORT INFORMATION
  Report Type: Spontaneous
  Country: JP (occurrence: JP)
  Receive Date: 20170508
  Receipt Date: 20190629
  Transmission Date: 20190711
  Serious: Yes (Hospitalization, Other)
  Sender: FDA-Public Use
  Company Number: JP-BRISTOL-MYERS SQUIBB COMPANY-BMS-2017-034725

PATIENT
  Age: 81 Year
  Sex: Male

DRUGS (1)
  1. OPDIVO [Suspect]
     Active Substance: NIVOLUMAB
     Indication: NON-SMALL CELL LUNG CANCER RECURRENT
     Dosage: 3 MG, QWK
     Route: 042
     Dates: start: 20170322

REACTIONS (6)
  - Cholecystitis [Not Recovered/Not Resolved]
  - Blood glucose increased [Unknown]
  - Liver disorder [Not Recovered/Not Resolved]
  - Glucose urine present [Recovered/Resolved]
  - Off label use [Unknown]
  - Hepatic enzyme increased [Unknown]

NARRATIVE: CASE EVENT DATE: 20170322
